FAERS Safety Report 6340727-8 (Version None)
Quarter: 2009Q3

REPORT INFORMATION
  Report Type: 
  Country: None (occurrence: None)
  Receive Date: 20090904
  Receipt Date: 20090831
  Transmission Date: 20100115
  Serious: No
  Sender: FDA-Public Use
  Company Number: US-JNJFOC-20090708270

PATIENT
  Sex: Female
  Weight: 67.59 kg

DRUGS (9)
  1. FENTANYL TRANSDERMAL SYSTEM [Suspect]
     Indication: SCOLIOSIS
     Route: 062
  2. DILAUDID [Concomitant]
     Indication: BREAKTHROUGH PAIN
     Route: 048
  3. NORTRIPTYLINE HCL [Concomitant]
     Indication: SLEEP DISORDER
     Route: 048
  4. ZANTAC [Concomitant]
     Indication: DYSPEPSIA
     Route: 048
  5. ATARAX [Concomitant]
     Indication: ANXIETY
     Route: 048
  6. KLONOPIN [Concomitant]
     Indication: ANXIETY
     Route: 048
  7. SOMA [Concomitant]
     Indication: MUSCLE RELAXANT THERAPY
     Route: 048
  8. REMERON [Concomitant]
     Indication: SLEEP DISORDER
     Route: 065
  9. CELEXA [Concomitant]
     Indication: DEPRESSION
     Route: 048

REACTIONS (4)
  - APPLICATION SITE RASH [None]
  - DRUG ADMINISTERED AT INAPPROPRIATE SITE [None]
  - PRODUCT QUALITY ISSUE [None]
  - WRONG TECHNIQUE IN DRUG USAGE PROCESS [None]
